FAERS Safety Report 8956116 (Version 1)
Quarter: 2012Q4

REPORT INFORMATION
  Report Type: 
  Country: US (occurrence: US)
  Receive Date: 20121210
  Receipt Date: 20121210
  Transmission Date: 20130627
  Serious: Yes (Other)
  Sender: FDA-Public Use
  Company Number: US-TEVA-374120USA

PATIENT
  Age: 51 Year
  Sex: Female

DRUGS (1)
  1. BACTRIM [Suspect]
     Indication: SKIN ULCER
     Route: 065

REACTIONS (1)
  - Antiphospholipid syndrome [Recovered/Resolved with Sequelae]
